FAERS Safety Report 17205681 (Version 1)
Quarter: 2020Q1

REPORT INFORMATION
  Report Type: Spontaneous
  Country: US (occurrence: US)
  Receive Date: 20191226
  Receipt Date: 20191226
  Transmission Date: 20200409
  Serious: Yes (Hospitalization)
  Sender: FDA-Public Use
  Company Number: None

PATIENT
  Age: 63 Year
  Sex: Male
  Weight: 62 kg

DRUGS (1)
  1. KEYTRUDA [Suspect]
     Active Substance: PEMBROLIZUMAB
     Indication: LUNG NEOPLASM MALIGNANT
     Dosage: ?          OTHER FREQUENCY:SAME DAY INFUSION;?
     Route: 047
     Dates: start: 20191218, end: 20191218

REACTIONS (4)
  - Blood pressure decreased [None]
  - Heart rate increased [None]
  - Unresponsive to stimuli [None]
  - Dyskinesia [None]

NARRATIVE: CASE EVENT DATE: 20191218
